FAERS Safety Report 22712885 (Version 4)
Quarter: 2023Q4

REPORT INFORMATION
  Report Type: Spontaneous
  Country: JP (occurrence: JP)
  Receive Date: 20230717
  Receipt Date: 20231020
  Transmission Date: 20240109
  Serious: Yes (Hospitalization, Other)
  Sender: FDA-Public Use
  Company Number: JP-ONO-2022JP026496

PATIENT
  Age: 74 Year
  Sex: Male

DRUGS (22)
  1. BRAFTOVI [Suspect]
     Active Substance: ENCORAFENIB
     Indication: Malignant melanoma
     Dosage: 450 MG, EVERYDAY
     Route: 048
     Dates: start: 20220716, end: 20220812
  2. BRAFTOVI [Suspect]
     Active Substance: ENCORAFENIB
     Dosage: 300 MG, 5-DAY ADMINISTRATION, 2-DAY SUSPENSION
     Route: 048
     Dates: start: 20221010
  3. MEKTOVI [Suspect]
     Active Substance: BINIMETINIB
     Indication: Malignant melanoma
     Dosage: 90 MG, EVERYDAY
     Route: 048
     Dates: start: 20220716, end: 20220812
  4. MEKTOVI [Suspect]
     Active Substance: BINIMETINIB
     Dosage: 60 MG, EVERYDAY, 5-DAY ADMINISTRATION, 2-DAY SUSPENSION
     Route: 048
     Dates: start: 20221010
  5. OPDIVO [Suspect]
     Active Substance: NIVOLUMAB
     Indication: Malignant melanoma
     Dosage: 80 MG
     Route: 041
     Dates: start: 20220207
  6. OPDIVO [Suspect]
     Active Substance: NIVOLUMAB
     Dosage: 240 MG, Q2W
     Route: 041
     Dates: start: 20220407, end: 20220617
  7. YERVOY [Suspect]
     Active Substance: IPILIMUMAB
     Indication: Malignant melanoma
     Dosage: 240 MG
     Route: 041
     Dates: start: 20220207
  8. DABRAFENIB MESYLATE [Suspect]
     Active Substance: DABRAFENIB MESYLATE
     Indication: Malignant melanoma
     Dosage: UNK (ORAL DRUG UNSPECIFIED FORM)
     Route: 048
     Dates: start: 20220902, end: 20220919
  9. TRAMETINIB DIMETHYL SULFOXIDE [Suspect]
     Active Substance: TRAMETINIB DIMETHYL SULFOXIDE
     Indication: Malignant melanoma
     Dosage: UNK (ORAL DRUG UNSPECIFIED FORM )
     Route: 048
     Dates: start: 20220902, end: 20220919
  10. CANDESARTAN CILEXETIL [Suspect]
     Active Substance: CANDESARTAN CILEXETIL
     Indication: Myocardial infarction
     Dosage: UNK (ORAL DRUG UNSPECIFIED FORM)
     Route: 048
  11. CARBOCYSTEINE [Suspect]
     Active Substance: CARBOCYSTEINE
     Dosage: UNK (ORAL DRUG UNSPECIFIED FORM)
     Route: 048
  12. ASPIRIN [Concomitant]
     Active Substance: ASPIRIN
     Indication: Myocardial infarction
     Dosage: UNK (ORAL DRUG UNSPECIFIED FORM)
     Route: 048
  13. PRASUGREL HYDROCHLORIDE [Concomitant]
     Active Substance: PRASUGREL HYDROCHLORIDE
     Indication: Myocardial infarction
     Dosage: UNK (ORAL DRUG UNSPECIFIED FORM)
     Route: 048
  14. NICORANDIL [Concomitant]
     Active Substance: NICORANDIL
     Indication: Myocardial infarction
     Dosage: UNK (ORAL DRUG UNSPECIFIED FORM)
     Route: 048
  15. PREDNISOLONE [Concomitant]
     Active Substance: PREDNISOLONE
     Dosage: 30 MG, EVERYDAY
     Route: 065
     Dates: start: 20220216, end: 20220228
  16. PREDNISOLONE [Concomitant]
     Active Substance: PREDNISOLONE
     Dosage: 25 MG, EVERYDAY
     Route: 065
     Dates: start: 20220301, end: 20220307
  17. PREDNISOLONE [Concomitant]
     Active Substance: PREDNISOLONE
     Dosage: 20 MG, EVERYDAY
     Route: 065
     Dates: start: 20220308, end: 20220315
  18. PREDNISOLONE [Concomitant]
     Active Substance: PREDNISOLONE
     Dosage: 15 MG, EVERYDAY
     Route: 065
     Dates: start: 20220316, end: 20220323
  19. PREDNISOLONE [Concomitant]
     Active Substance: PREDNISOLONE
     Dosage: 10 MG, EVERYDAY
     Route: 065
     Dates: start: 20220324, end: 20220330
  20. PREDNISOLONE [Concomitant]
     Active Substance: PREDNISOLONE
     Dosage: 7.5 MG, EVERYDAY
     Route: 065
     Dates: start: 20220331, end: 20220401
  21. PREDNISOLONE [Concomitant]
     Active Substance: PREDNISOLONE
     Dosage: 5 MG, EVERYDAY
     Route: 065
     Dates: start: 20220402, end: 20220404
  22. LEVOTHYROXINE [Concomitant]
     Active Substance: LEVOTHYROXINE
     Dosage: UNK
     Route: 065
     Dates: start: 20220502

REACTIONS (4)
  - Diarrhoea [Recovering/Resolving]
  - Adrenal insufficiency [Unknown]
  - Drug eruption [Not Recovered/Not Resolved]
  - Inappropriate schedule of product administration [Unknown]

NARRATIVE: CASE EVENT DATE: 20220812
